FAERS Safety Report 13048911 (Version 3)
Quarter: 2017Q1

REPORT INFORMATION
  Report Type: Report from Study
  Country: US (occurrence: US)
  Receive Date: 20161221
  Receipt Date: 20170114
  Transmission Date: 20170428
  Serious: Yes (Death)
  Sender: FDA-Public Use
  Company Number: PHEH2016US033162

PATIENT
  Age: 84 Year
  Sex: Female
  Weight: 47.7 kg

DRUGS (2)
  1. JADENU [Suspect]
     Active Substance: DEFERASIROX
     Indication: MYELODYSPLASTIC SYNDROME
  2. JADENU [Suspect]
     Active Substance: DEFERASIROX
     Indication: REFRACTORY CYTOPENIA WITH UNILINEAGE DYSPLASIA
     Dosage: UNK (2 TO 90 MG)
     Route: 048
     Dates: start: 20160805

REACTIONS (4)
  - Sepsis [Fatal]
  - Acute myeloid leukaemia [Fatal]
  - Myelodysplastic syndrome transformation [Fatal]
  - Pneumonia [Fatal]

NARRATIVE: CASE EVENT DATE: 20161105
